FAERS Safety Report 18192602 (Version 1)
Quarter: 2020Q3

REPORT INFORMATION
  Report Type: Report from Study
  Country: EC (occurrence: EC)
  Receive Date: 20200825
  Receipt Date: 20200825
  Transmission Date: 20201103
  Serious: Yes (Death, Hospitalization)
  Sender: FDA-Public Use
  Company Number: EC-BAYER-2020-173791

PATIENT
  Age: 76 Year
  Sex: Female

DRUGS (1)
  1. NEXAVAR [Suspect]
     Active Substance: SORAFENIB
     Indication: HEPATOCELLULAR CARCINOMA
     Dosage: 800 MG DAILY
     Dates: start: 20200709, end: 20200727

REACTIONS (4)
  - Gastric ulcer perforation [Fatal]
  - Gastric ulcer haemorrhage [Fatal]
  - Therapeutic response decreased [None]
  - Gastric ulcer [Fatal]

NARRATIVE: CASE EVENT DATE: 20200724
